FAERS Safety Report 20596198 (Version 2)
Quarter: 2022Q2

REPORT INFORMATION
  Report Type: Spontaneous
  Country: US (occurrence: None)
  Receive Date: 20220315
  Receipt Date: 20220414
  Transmission Date: 20220720
  Serious: No
  Sender: FDA-Public Use
  Company Number: 2022A104921

PATIENT
  Sex: Female

DRUGS (1)
  1. BUDESONIDE\FORMOTEROL\GLYCOPYRRONIUM [Suspect]
     Active Substance: BUDESONIDE\FORMOTEROL\GLYCOPYRRONIUM
     Indication: Asthma
     Dosage: 160/7.2/5.0MCG, PUFFS TWICE EACH DAY
     Route: 055

REACTIONS (4)
  - Eye disorder [Unknown]
  - Eye irritation [Unknown]
  - Device use confusion [Unknown]
  - Device use issue [Not Recovered/Not Resolved]
